FAERS Safety Report 6509146-5 (Version None)
Quarter: 2009Q4

REPORT INFORMATION
  Report Type: 
  Country: None (occurrence: None)
  Receive Date: 20091221
  Receipt Date: 20091211
  Transmission Date: 20100525
  Serious: Yes (Other)
  Sender: FDA-Public Use
  Company Number: AU-AMGEN-US379614

PATIENT
  Sex: Male

DRUGS (1)
  1. NPLATE [Suspect]
     Indication: IDIOPATHIC THROMBOCYTOPENIC PURPURA
     Dates: start: 20090901, end: 20091201

REACTIONS (4)
  - DRUG INTOLERANCE [None]
  - MUSCULOSKELETAL PAIN [None]
  - RASH [None]
  - THERAPEUTIC RESPONSE DECREASED [None]
